FAERS Safety Report 11323978 (Version 2)
Quarter: 2015Q3

REPORT INFORMATION
  Report Type: Spontaneous
  Country: PR (occurrence: PR)
  Receive Date: 20150730
  Receipt Date: 20150925
  Transmission Date: 20151125
  Serious: Yes (Hospitalization)
  Sender: FDA-Public Use
  Company Number: US-PFIZER INC-2015254180

PATIENT
  Age: 48 Year
  Sex: Male

DRUGS (4)
  1. ACCUPRIL [Concomitant]
     Active Substance: QUINAPRIL HYDROCHLORIDE
     Indication: HYPERTENSION
     Dosage: 40 MG, UNK
  2. AVAPRO [Concomitant]
     Active Substance: IRBESARTAN
     Indication: HYPERTENSION
     Dosage: UNK, (150)
  3. MEDROL [Suspect]
     Active Substance: METHYLPREDNISOLONE
     Indication: JOINT SWELLING
     Dosage: 4 MG, UNK (USE AS DOSE PAK SCHEDULED BUT ONLY FOR 3 DAYS)
     Route: 048
     Dates: start: 20150721, end: 20150723
  4. CADUET [Concomitant]
     Active Substance: AMLODIPINE BESYLATE\ATORVASTATIN CALCIUM
     Indication: HYPERTENSION
     Dosage: UNK (AMLODIPINE 5 AND ATORVASTATIN 10)

REACTIONS (3)
  - Large intestine perforation [Unknown]
  - Gastrointestinal tract irritation [Unknown]
  - Diverticulitis [Unknown]

NARRATIVE: CASE EVENT DATE: 20150723
